FAERS Safety Report 7723198-6 (Version None)
Quarter: 2011Q3

REPORT INFORMATION
  Report Type: 
  Country: None (occurrence: None)
  Receive Date: 20110826
  Receipt Date: 20110810
  Transmission Date: 20111222
  Serious: Yes (Hospitalization)
  Sender: FDA-Public Use
  Company Number: FK201101669

PATIENT
  Age: 46 Year
  Sex: Male

DRUGS (2)
  1. MITOXANTRONE [Suspect]
     Indication: B PRECURSOR TYPE ACUTE LEUKAEMIA
  2. CYTARABINE [Suspect]
     Indication: B PRECURSOR TYPE ACUTE LEUKAEMIA

REACTIONS (3)
  - FEBRILE NEUTROPENIA [None]
  - FUSOBACTERIUM TEST POSITIVE [None]
  - BACTERAEMIA [None]
